FAERS Safety Report 10229704 (Version 4)
Quarter: 2014Q2

REPORT INFORMATION
  Report Type: Spontaneous
  Country: JP (occurrence: JP)
  Receive Date: 20140611
  Receipt Date: 20140626
  Transmission Date: 20141212
  Serious: Yes (Hospitalization, Other)
  Sender: FDA-Public Use
  Company Number: PHHY2014JP069913

PATIENT
  Age: 84 Year
  Sex: Female

DRUGS (4)
  1. EXELON PATCH [Suspect]
     Indication: DEMENTIA ALZHEIMER^S TYPE
     Dosage: UNK UKN, UNK
     Route: 062
  2. OLMETEC [Concomitant]
     Dosage: UNK UKN, UNK
     Route: 048
  3. BONALON [Concomitant]
     Dosage: UNK UKN, UNK
  4. BAYASPIRIN [Concomitant]
     Indication: DEMENTIA ALZHEIMER^S TYPE
     Dosage: UNK UKN, UNK

REACTIONS (5)
  - Gastric ulcer [Unknown]
  - Haematemesis [Unknown]
  - Anaemia [Unknown]
  - Mood altered [Unknown]
  - Abnormal behaviour [Unknown]
